FAERS Safety Report 9912399 (Version 2)
Quarter: 2014Q1

REPORT INFORMATION
  Report Type: Spontaneous
  Country: US (occurrence: US)
  Receive Date: 20140220
  Receipt Date: 20140220
  Transmission Date: 20141002
  Serious: Yes (Hospitalization)
  Sender: FDA-Public Use
  Company Number: US-BEH-2013034725

PATIENT
  Age: 45 Year
  Sex: Female
  Weight: 54 kg

DRUGS (2)
  1. HIZENTRA [Suspect]
     Dosage: STOPPED THE MONTH OF JAN-2013
     Route: 058
  2. HIZENTRA [Suspect]
     Dosage: RE-STARTED FEB-2013
     Route: 058

REACTIONS (5)
  - Meningism [Recovered/Resolved]
  - Headache [Recovered/Resolved]
  - Nasopharyngitis [Not Recovered/Not Resolved]
  - Sinusitis [Not Recovered/Not Resolved]
  - Malaise [Unknown]
